FAERS Safety Report 19774102 (Version 1)
Quarter: 2021Q3

REPORT INFORMATION
  Report Type: Spontaneous
  Country: US (occurrence: US)
  Receive Date: 20210901
  Receipt Date: 20210901
  Transmission Date: 20211014
  Serious: No
  Sender: FDA-Public Use
  Company Number: US-SA-2021SA283291

PATIENT
  Age: 16 Year
  Sex: Male

DRUGS (1)
  1. DUPIXENT [Suspect]
     Active Substance: DUPILUMAB
     Indication: DERMATITIS ATOPIC
     Dosage: 300 MG
     Route: 058
     Dates: start: 202107

REACTIONS (5)
  - Erythema [Unknown]
  - Skin texture abnormal [Unknown]
  - Yellow skin [Unknown]
  - Product use issue [Unknown]
  - Sunburn [Unknown]

NARRATIVE: CASE EVENT DATE: 202107
